FAERS Safety Report 8462518-4 (Version None)
Quarter: 2012Q2

REPORT INFORMATION
  Report Type: 
  Country: None (occurrence: None)
  Receive Date: 20120625
  Receipt Date: 20120611
  Transmission Date: 20120825
  Serious: Yes (Hospitalization)
  Sender: FDA-Public Use
  Company Number: PL-MYLANLABS-2012S1012145

PATIENT
  Age: 23 Year
  Sex: Female

DRUGS (9)
  1. IBUPROFEN [Suspect]
     Indication: INFLUENZA LIKE ILLNESS
     Route: 065
  2. ACETAMINOPHEN [Suspect]
     Indication: LYMPHADENOPATHY
     Route: 065
  3. CLARITHROMYCIN [Suspect]
     Indication: GASTROENTERITIS
     Route: 065
  4. IBUPROFEN [Suspect]
     Indication: LYMPHADENOPATHY
     Route: 065
  5. ACETAMINOPHEN [Suspect]
     Indication: INFLUENZA LIKE ILLNESS
     Route: 065
  6. ACETAMINOPHEN [Suspect]
     Indication: GASTROENTERITIS
     Route: 065
  7. CLARITHROMYCIN [Suspect]
     Indication: INFLUENZA LIKE ILLNESS
     Route: 065
  8. CLARITHROMYCIN [Suspect]
     Indication: LYMPHADENOPATHY
     Route: 065
  9. IBUPROFEN [Suspect]
     Indication: GASTROENTERITIS
     Route: 065

REACTIONS (8)
  - PULMONARY OEDEMA [None]
  - RESPIRATORY FAILURE [None]
  - TRANSFUSION-RELATED ACUTE LUNG INJURY [None]
  - DERMATITIS EXFOLIATIVE [None]
  - RENAL IMPAIRMENT [None]
  - ENCEPHALOPATHY [None]
  - HYPOXIA [None]
  - ACUTE HEPATIC FAILURE [None]
